FAERS Safety Report 12544246 (Version 1)
Quarter: 2016Q3

REPORT INFORMATION
  Report Type: Spontaneous
  Country: US (occurrence: US)
  Receive Date: 20160711
  Receipt Date: 20160711
  Transmission Date: 20161109
  Serious: Yes (Death)
  Sender: FDA-Public Use
  Company Number: PHHO2016US009721

PATIENT

DRUGS (4)
  1. OFATUMUMAB [Suspect]
     Active Substance: OFATUMUMAB
     Dosage: 1000 MG, UNK (CYCLE 1: DAY 8)
     Route: 042
  2. BENDAMUSTINE [Suspect]
     Active Substance: BENDAMUSTINE
     Indication: CHRONIC LYMPHOCYTIC LEUKAEMIA RECURRENT
     Dosage: 70 MG/M2, (6 CYCLES: DAYS 1 AND 2, EVERY 28 DAYS)
     Route: 042
  3. OFATUMUMAB [Suspect]
     Active Substance: OFATUMUMAB
     Indication: CHRONIC LYMPHOCYTIC LEUKAEMIA RECURRENT
     Dosage: 300 MG, UNK (CYCLE 1: DAY 1)
     Route: 042
  4. OFATUMUMAB [Suspect]
     Active Substance: OFATUMUMAB
     Dosage: 1000 MG, UNK (CYCLE 2-6 AT DAY 1 EVERY 28 DAYS)
     Route: 042

REACTIONS (1)
  - Cardiac failure congestive [Fatal]
